FAERS Safety Report 14669215 (Version 4)
Quarter: 2019Q2

REPORT INFORMATION
  Report Type: Report from Study
  Country: BR (occurrence: BR)
  Receive Date: 20180322
  Receipt Date: 20190405
  Transmission Date: 20190711
  Serious: Yes (Hospitalization, Other)
  Sender: FDA-Public Use
  Company Number: BR-JNJFOC-20180322106

PATIENT
  Age: 64 Year
  Sex: Female
  Weight: 62 kg

DRUGS (6)
  1. MEROPENEM. [Concomitant]
     Active Substance: MEROPENEM
     Route: 065
  2. DORENE [Concomitant]
     Route: 065
  3. CLONAZEPAM. [Concomitant]
     Active Substance: CLONAZEPAM
     Route: 065
  4. ERTAPENEM. [Concomitant]
     Active Substance: ERTAPENEM SODIUM
     Route: 065
  5. SIMPONI [Suspect]
     Active Substance: GOLIMUMAB
     Indication: RHEUMATOID ARTHRITIS
     Route: 058
     Dates: end: 201801
  6. SIMPONI [Suspect]
     Active Substance: GOLIMUMAB
     Indication: RHEUMATOID ARTHRITIS
     Route: 058
     Dates: start: 20170705, end: 20171005

REACTIONS (13)
  - Rib fracture [Recovered/Resolved]
  - Device related infection [Recovered/Resolved]
  - Nosocomial infection [Recovered/Resolved]
  - Accident [Unknown]
  - Fall [Unknown]
  - Rheumatoid arthritis [Unknown]
  - Hypoaesthesia [Unknown]
  - Skin discolouration [Unknown]
  - Product dose omission [Unknown]
  - Limb asymmetry [Recovering/Resolving]
  - Weight decreased [Unknown]
  - Injection site scar [Unknown]
  - Femur fracture [Unknown]

NARRATIVE: CASE EVENT DATE: 201801
